FAERS Safety Report 21920967 (Version 1)
Quarter: 2023Q1

REPORT INFORMATION
  Report Type: Spontaneous
  Country: US (occurrence: US)
  Receive Date: 20230127
  Receipt Date: 20230127
  Transmission Date: 20230418
  Serious: Yes (Other)
  Sender: FDA-Public Use
  Company Number: US-ABBVIE-4285520

PATIENT
  Sex: Female

DRUGS (3)
  1. HUMIRA [Suspect]
     Active Substance: ADALIMUMAB
     Indication: Uveitis
     Route: 058
     Dates: start: 202207
  2. HUMIRA [Suspect]
     Active Substance: ADALIMUMAB
     Indication: Tubulointerstitial nephritis and uveitis syndrome
  3. METHOTREXATE [Suspect]
     Active Substance: METHOTREXATE
     Indication: Uveitis
     Dosage: FREQUENCY TEXT: WEEKLY
     Route: 048
     Dates: start: 202204

REACTIONS (1)
  - Brain stem glioma [Unknown]
